FAERS Safety Report 18012722 (Version 1)
Quarter: 2020Q3

REPORT INFORMATION
  Report Type: Spontaneous
  Country: ES (occurrence: ES)
  Receive Date: 20200713
  Receipt Date: 20200713
  Transmission Date: 20201103
  Serious: Yes (Hospitalization)
  Sender: FDA-Public Use
  Company Number: ES-TEVA-2020-ES-1798738

PATIENT
  Age: 88 Year
  Sex: Female

DRUGS (10)
  1. BISOPROLOL (2328A) [Suspect]
     Active Substance: BISOPROLOL
     Indication: ATRIAL FIBRILLATION
     Dosage: 2.5 MG
     Route: 048
     Dates: start: 2002, end: 20200528
  2. PARACETAMOL (12A) [Concomitant]
     Active Substance: ACETAMINOPHEN
     Route: 048
  3. ATORVASTATINA (7400A) [Concomitant]
     Active Substance: ATORVASTATIN
     Route: 048
  4. APOCARD 100 MG COMPRIMIDOS , 30 COMPRIMIDOS [Suspect]
     Active Substance: FLECAINIDE ACETATE
     Indication: ATRIAL FIBRILLATION
     Route: 048
     Dates: start: 2002
  5. LORMETAZEPAM (88A) [Concomitant]
     Active Substance: LORMETAZEPAM
     Route: 048
  6. NATECAL 600 MG  COMPRIMIDOS MASTICABLES, 20 COMPRIMIDOS [Concomitant]
     Route: 048
  7. METAMIZOL (111A) [Concomitant]
     Active Substance: METAMIZOL SODIUM
     Route: 048
  8. OMEPRAZOL (2141A) [Concomitant]
     Active Substance: OMEPRAZOLE
     Dosage: 20 MG
     Route: 048
  9. AMLODIPINO (2503A) [Concomitant]
     Active Substance: AMLODIPINE BESYLATE
     Route: 048
  10. LYRICA 150 MG CAPSULAS DURAS, 56 CAPSULAS [Concomitant]
     Route: 048

REACTIONS (2)
  - Sinoatrial block [Recovered/Resolved]
  - Bradycardia [Recovered/Resolved]

NARRATIVE: CASE EVENT DATE: 20200528
